FAERS Safety Report 9419992 (Version 1)
Quarter: 2013Q3

REPORT INFORMATION
  Report Type: Spontaneous
  Country: CA (occurrence: CA)
  Receive Date: 20130725
  Receipt Date: 20130725
  Transmission Date: 20140515
  Serious: Yes (Other)
  Sender: FDA-Public Use
  Company Number: CA-JNJFOC-20130710708

PATIENT
  Sex: 0

DRUGS (6)
  1. DOXORUBICIN [Suspect]
     Indication: PLASMA CELL MYELOMA
     Dosage: 4 DAYS CONTINUOUS INFUSION, ADMINISTERED EVERY 4-6 WEEKS
     Route: 042
  2. DEXAMETHASONE [Suspect]
     Indication: PLASMA CELL MYELOMA
     Dosage: FOR FOUR DAYS, ADMINISTERED EVERY 4-6 WEEKS
     Route: 048
  3. THALIDOMIDE [Suspect]
     Indication: PLASMA CELL MYELOMA
     Dosage: DAILY TARGET DOSE OF 200 MG ADMINISTERED ORALLY (RANGE, 50-200 MG DAILY)
     Route: 048
  4. CISPLATIN [Suspect]
     Indication: PLASMA CELL MYELOMA
     Dosage: 4 DAYS CONTINUOUS INFUSION, ADMINISTERED EVERY 4-6 WEEKS
     Route: 042
  5. CYCLOPHOSPHAMIDE [Suspect]
     Indication: PLASMA CELL MYELOMA
     Dosage: 4 DAYS CONTINUOUS INFUSION, ADMINISTERED EVERY 4-6 WEEKS
     Route: 042
  6. ETOPOSIDE [Suspect]
     Indication: PLASMA CELL MYELOMA
     Dosage: 4 DAYS CONTINUOUS INFUSION, ADMINISTERED EVERY 4-6 WEEKS
     Route: 042

REACTIONS (1)
  - Embolism [Unknown]
